FAERS Safety Report 7893472-1 (Version None)
Quarter: 2011Q4

REPORT INFORMATION
  Report Type: 
  Country: None (occurrence: None)
  Receive Date: 20111104
  Receipt Date: 20111021
  Transmission Date: 20120403
  Serious: Yes (Other)
  Sender: FDA-Public Use
  Company Number: DE-ROCHE-1008086

PATIENT
  Age: 31 Year
  Sex: Female

DRUGS (3)
  1. XOLAIR [Suspect]
     Indication: ASTHMA
     Route: 058
     Dates: start: 20100101
  2. XOLAIR [Suspect]
     Route: 058
     Dates: start: 20110101, end: 20110901
  3. CORTICOIDS [Concomitant]

REACTIONS (3)
  - ANAPHYLACTOID REACTION [None]
  - ERYTHEMA [None]
  - INJECTION SITE PAIN [None]
